FAERS Safety Report 20245871 (Version 1)
Quarter: 2021Q4

REPORT INFORMATION
  Report Type: Spontaneous
  Country: IN (occurrence: IN)
  Receive Date: 20211229
  Receipt Date: 20211229
  Transmission Date: 20220303
  Serious: Yes (Death, Other)
  Sender: FDA-Public Use
  Company Number: IN-Shilpa Medicare Limited-SML-IN-2021-01553

PATIENT
  Age: 55 Year
  Sex: Male

DRUGS (3)
  1. GEMCITABINE [Suspect]
     Active Substance: GEMCITABINE
     Indication: Adenocarcinoma gastric
     Dosage: D1 AND D8 OF 21 DAY CYCLE
     Route: 042
     Dates: start: 201810, end: 201902
  2. PEMETREXED [Suspect]
     Active Substance: PEMETREXED
     Indication: Adenocarcinoma gastric
     Dosage: D1 AND D8 OF 21 DAY CYCLE
     Route: 042
     Dates: start: 201810, end: 201902
  3. PAZOPANIB [Suspect]
     Active Substance: PAZOPANIB
     Indication: Adenocarcinoma gastric
     Route: 048
     Dates: start: 201810, end: 201902

REACTIONS (5)
  - Fatigue [Recovered/Resolved]
  - Thrombocytopenia [Recovered/Resolved]
  - Sepsis [Recovered/Resolved]
  - Pneumothorax [Recovered/Resolved]
  - Death [Fatal]

NARRATIVE: CASE EVENT DATE: 20200301
